FAERS Safety Report 17730460 (Version 1)
Quarter: 2020Q2

REPORT INFORMATION
  Report Type: Report from Study
  Country: CN (occurrence: CN)
  Receive Date: 20200430
  Receipt Date: 20200430
  Transmission Date: 20200714
  Serious: Yes (Other)
  Sender: FDA-Public Use
  Company Number: CN-ASTRAZENECA-2020SE56447

PATIENT
  Age: 52 Year
  Sex: Male

DRUGS (8)
  1. TICAGRELOR. [Suspect]
     Active Substance: TICAGRELOR
     Indication: ACUTE MYOCARDIAL INFARCTION
     Route: 048
  2. DOPAMINE [Concomitant]
     Active Substance: DOPAMINE HYDROCHLORIDE
  3. ATROPINE. [Concomitant]
     Active Substance: ATROPINE
  4. CLOPIDOGREL [Concomitant]
     Active Substance: CLOPIDOGREL BISULFATE
  5. ASPIRIN. [Concomitant]
     Active Substance: ASPIRIN
  6. METFORMIN [Concomitant]
     Active Substance: METFORMIN HYDROCHLORIDE
  7. BISOPROLOL [Concomitant]
     Active Substance: BISOPROLOL
  8. ROSUVASTATIN. [Concomitant]
     Active Substance: ROSUVASTATIN

REACTIONS (2)
  - Atrioventricular block [Recovered/Resolved]
  - Ventricular asystole [Recovered/Resolved]
